FAERS Safety Report 16562361 (Version 1)
Quarter: 2019Q3

REPORT INFORMATION
  Report Type: Spontaneous
  Country: DK (occurrence: DK)
  Receive Date: 20190711
  Receipt Date: 20190711
  Transmission Date: 20191004
  Serious: Yes (Hospitalization)
  Sender: FDA-Public Use
  Company Number: PHHY2019DK158152

PATIENT
  Age: 57 Year
  Sex: Female

DRUGS (1)
  1. DICILLIN [Suspect]
     Active Substance: DICLOXACILLIN SODIUM
     Indication: IMPETIGO
     Dosage: 3000 MG, QD
     Route: 048
     Dates: start: 20180205, end: 20180305

REACTIONS (6)
  - Decreased appetite [Recovered/Resolved]
  - Food aversion [Recovered/Resolved]
  - Jaundice [Recovered/Resolved]
  - Pruritus [Recovered/Resolved]
  - Chromaturia [Recovered/Resolved]
  - Hepatitis cholestatic [Recovered/Resolved]

NARRATIVE: CASE EVENT DATE: 20180305
